FAERS Safety Report 24594892 (Version 1)
Quarter: 2024Q4

REPORT INFORMATION
  Report Type: Spontaneous
  Country: US (occurrence: None)
  Receive Date: 20241108
  Receipt Date: 20241108
  Transmission Date: 20250115
  Serious: Yes (Disabling)
  Sender: Public
  Company Number: None

PATIENT
  Age: 48 Year
  Sex: Female
  Weight: 54 kg

DRUGS (6)
  1. LIOTHYRONINE [Suspect]
     Active Substance: LIOTHYRONINE
     Indication: Thyroid disorder
     Dosage: 1 CAPSULE DAILY ORAL?
     Route: 048
     Dates: start: 20230912, end: 20240129
  2. LIOTHYRONINE [Suspect]
     Active Substance: LIOTHYRONINE
     Indication: Thyroid disorder
     Dosage: 1 CAPSULE DAILY ORAL?
     Route: 048
     Dates: start: 20230130, end: 20240212
  3. LEVOTHYROXINE [Concomitant]
  4. VITAMINS [Concomitant]
     Active Substance: VITAMINS
  5. IRON [Concomitant]
  6. OMEGA 3 [Concomitant]
     Active Substance: CAPSAICIN

REACTIONS (15)
  - Blepharospasm [None]
  - Brain fog [None]
  - Fatigue [None]
  - Feeling abnormal [None]
  - Nonspecific reaction [None]
  - Fear [None]
  - Autoscopy [None]
  - Hallucination, auditory [None]
  - Crying [None]
  - Feeling of despair [None]
  - Depression [None]
  - Anxiety [None]
  - Stress [None]
  - Memory impairment [None]
  - Mental disorder [None]

NARRATIVE: CASE EVENT DATE: 20231015
